FAERS Safety Report 16861268 (Version 1)
Quarter: 2019Q3

REPORT INFORMATION
  Report Type: Spontaneous
  Country: NL (occurrence: NL)
  Receive Date: 20190927
  Receipt Date: 20190927
  Transmission Date: 20191005
  Serious: Yes (Other)
  Sender: FDA-Public Use
  Company Number: NL-TEVA-2019-NL-1112547

PATIENT
  Sex: Female
  Weight: 76 kg

DRUGS (1)
  1. DICLOFENAC [Suspect]
     Active Substance: DICLOFENAC
     Indication: BURSITIS
     Dosage: 50 MG.
     Route: 065
     Dates: start: 20190805, end: 20190815

REACTIONS (1)
  - Neuropathy peripheral [Recovered/Resolved]
